FAERS Safety Report 10155672 (Version 1)
Quarter: 2014Q2

REPORT INFORMATION
  Report Type: Spontaneous
  Country: US (occurrence: US)
  Receive Date: 20140506
  Receipt Date: 20140506
  Transmission Date: 20141212
  Serious: Yes (Other)
  Sender: FDA-Public Use
  Company Number: US-GLAXOSMITHKLINE-B0990712A

PATIENT
  Age: 83 Year
  Sex: Female

DRUGS (3)
  1. LETAIRIS [Suspect]
     Indication: PRODUCT USED FOR UNKNOWN INDICATION
     Dosage: 5MG PER DAY
     Route: 065
     Dates: start: 20100813
  2. FLUTICASONE [Suspect]
     Indication: SINUS DISORDER
  3. SPIRIVA [Concomitant]
     Indication: SINUS DISORDER

REACTIONS (3)
  - Pneumonia [Unknown]
  - Bronchitis [Unknown]
  - Sinusitis [Unknown]
